FAERS Safety Report 4415343-5 (Version None)
Quarter: 2004Q2

REPORT INFORMATION
  Report Type: 
  Country: None (occurrence: None)
  Receive Date: 20040630
  Receipt Date: 20030513
  Transmission Date: 20050107
  Serious: Yes (Other)
  Sender: FDA-Public Use
  Company Number: 2003020703

PATIENT
  Age: 46 Year
  Sex: Female
  Weight: 48.9885 kg

DRUGS (3)
  1. ZOLOFT [Suspect]
     Indication: ILL-DEFINED DISORDER
     Dosage: 50 MG (DAILY), ORAL
     Route: 048
     Dates: start: 20030301
  2. ALL OTHER NON-THERAPEUTIC PRODUCTS (ALL OTHER THERAPEUTIC PRODUCTS) [Suspect]
     Indication: ILL-DEFINED DISORDER
     Dosage: ORAL
     Route: 048
  3. ANOVLAR (NORETHISTERONE ACETATE, ETHINYLESTRADIOL) [Concomitant]

REACTIONS (9)
  - ANXIETY [None]
  - DRUG EFFECT DECREASED [None]
  - DRUG INTERACTION [None]
  - DRY MOUTH [None]
  - GALACTORRHOEA [None]
  - INSOMNIA [None]
  - OEDEMA PERIPHERAL [None]
  - URTICARIA [None]
  - WEIGHT DECREASED [None]
